FAERS Safety Report 23617454 (Version 2)
Quarter: 2024Q3

REPORT INFORMATION
  Report Type: Other
  Country: US (occurrence: US)
  Receive Date: 20240311
  Receipt Date: 20240730
  Transmission Date: 20241017
  Serious: Yes (Hospitalization)
  Sender: KINIKSA PHARMACEUTICALS
  Company Number: US-Kiniksa Pharmaceuticals Ltd.-2023KPU000840

PATIENT
  Age: 25 Year
  Sex: Male

DRUGS (4)
  1. RILONACEPT [Suspect]
     Active Substance: RILONACEPT
     Indication: Pericarditis
     Route: 058
     Dates: start: 20230320, end: 20230707
  2. RILONACEPT [Suspect]
     Active Substance: RILONACEPT
     Route: 058
     Dates: start: 20230728
  3. COLCHICINE [Concomitant]
     Active Substance: COLCHICINE
     Indication: Product used for unknown indication
     Route: 048
     Dates: start: 20230524
  4. IBUPROFEN [Concomitant]
     Active Substance: IBUPROFEN
     Indication: Product used for unknown indication
     Route: 048
     Dates: start: 20230316

REACTIONS (1)
  - Pyelonephritis [Recovered/Resolved]

NARRATIVE: CASE EVENT DATE: 20230709
